FAERS Safety Report 21566604 (Version 2)
Quarter: 2022Q4

REPORT INFORMATION
  Report Type: Spontaneous
  Country: US (occurrence: US)
  Receive Date: 20221108
  Receipt Date: 20221222
  Transmission Date: 20230113
  Serious: No
  Sender: FDA-Public Use
  Company Number: US-PFIZER INC-PV202200095942

PATIENT

DRUGS (2)
  1. HYDROXYZINE PAMOATE [Suspect]
     Active Substance: HYDROXYZINE PAMOATE
     Dosage: UNK
  2. CAPLYTA [Concomitant]
     Active Substance: LUMATEPERONE
     Dosage: UNK

REACTIONS (1)
  - Feeling abnormal [Unknown]
